FAERS Safety Report 10532990 (Version 1)
Quarter: 2014Q4

REPORT INFORMATION
  Report Type: Spontaneous
  Country: US (occurrence: US)
  Receive Date: 20141022
  Receipt Date: 20141022
  Transmission Date: 20150529
  Serious: Yes (Other)
  Sender: FDA-Public Use
  Company Number: US-ROCHE-1476245

PATIENT
  Sex: Female

DRUGS (3)
  1. AVASTIN [Suspect]
     Active Substance: BEVACIZUMAB
     Indication: MACULAR DEGENERATION
     Route: 050
  2. LUCENTIS [Suspect]
     Active Substance: RANIBIZUMAB
     Indication: RETINAL OEDEMA
     Dosage: BOTH EYES
     Route: 050
  3. LUCENTIS [Suspect]
     Active Substance: RANIBIZUMAB
     Indication: MACULAR DEGENERATION

REACTIONS (9)
  - Eye irritation [Recovered/Resolved]
  - Off label use [Unknown]
  - Ocular hyperaemia [Recovered/Resolved]
  - Photopsia [Unknown]
  - Drug ineffective [Unknown]
  - Visual acuity reduced [Not Recovered/Not Resolved]
  - Retinal oedema [Not Recovered/Not Resolved]
  - Eye pain [Recovered/Resolved]
  - Photophobia [Recovering/Resolving]
